FAERS Safety Report 5771733-X (Version None)
Quarter: 2008Q2

REPORT INFORMATION
  Report Type: 
  Country: None (occurrence: None)
  Receive Date: 20080611
  Receipt Date: 20080531
  Transmission Date: 20081010
  Serious: Yes (Other)
  Sender: FDA-Public Use
  Company Number: CHPA2008US09316

PATIENT
  Age: 76 Year
  Sex: Male
  Weight: 74.8 kg

DRUGS (1)
  1. GAS-X EXTSTR CHEWABLE TABS CHERRY CREME (NCH)(SIMETHICONE) CHEWABLE TA [Suspect]
     Indication: FLATULENCE
     Dosage: 250 MG, TID
     Dates: start: 19880101

REACTIONS (5)
  - BLOOD CHOLESTEROL INCREASED [None]
  - DIABETES MELLITUS [None]
  - DRUG INEFFECTIVE [None]
  - HYPERTENSION [None]
  - OVERDOSE [None]
